FAERS Safety Report 14944724 (Version 4)
Quarter: 2025Q3

REPORT INFORMATION
  Report Type: Spontaneous
  Country: EU (occurrence: EU)
  Receive Date: 20180529
  Receipt Date: 20250826
  Transmission Date: 20251021
  Serious: Yes (Other)
  Sender: ASTELLAS
  Company Number: EU-ROCHE-2127382

PATIENT
  Age: 66 Year
  Sex: Female

DRUGS (2)
  1. ERLOTINIB [Suspect]
     Active Substance: ERLOTINIB
     Indication: Lung adenocarcinoma
     Route: 065
  2. ERLOTINIB [Suspect]
     Active Substance: ERLOTINIB
     Route: 065

REACTIONS (2)
  - Alopecia scarring [Unknown]
  - Superinfection bacterial [Unknown]
